FAERS Safety Report 7371821-0 (Version None)
Quarter: 2011Q1

REPORT INFORMATION
  Report Type: 
  Country: None (occurrence: None)
  Receive Date: 20110324
  Receipt Date: 20110309
  Transmission Date: 20110831
  Serious: Yes (Disabling)
  Sender: FDA-Public Use
  Company Number: GB-BAUSCH-2011BL001580

PATIENT
  Age: 12 Year
  Sex: Male
  Weight: 44 kg

DRUGS (5)
  1. MERCAPTOPURINE [Concomitant]
     Indication: ACUTE LYMPHOCYTIC LEUKAEMIA
     Route: 048
     Dates: start: 20100101
  2. METHOTREXATE [Concomitant]
     Route: 037
     Dates: start: 20110216
  3. METHOTREXATE [Concomitant]
     Indication: ACUTE LYMPHOCYTIC LEUKAEMIA
     Route: 048
     Dates: start: 20100101
  4. COTRIM [Concomitant]
     Indication: ANTIFUNGAL PROPHYLAXIS
     Route: 048
     Dates: end: 20091101
  5. DEXAMETHASONE [Suspect]
     Indication: LEUKAEMIA RECURRENT
     Route: 048
     Dates: start: 20100217, end: 20100220

REACTIONS (3)
  - VITH NERVE PARALYSIS [None]
  - HYPERAESTHESIA [None]
  - IVTH NERVE PARALYSIS [None]
